FAERS Safety Report 6449764-6 (Version None)
Quarter: 2009Q4

REPORT INFORMATION
  Report Type: 
  Country: None (occurrence: None)
  Receive Date: 20091120
  Receipt Date: 20090228
  Transmission Date: 20100525
  Serious: Yes (Other)
  Sender: FDA-Public Use
  Company Number: US-AMGEN-QUU336224

PATIENT
  Sex: Female

DRUGS (2)
  1. ENBREL [Suspect]
     Indication: RHEUMATOID ARTHRITIS
     Route: 058
     Dates: start: 20020201
  2. METHOTREXATE [Concomitant]

REACTIONS (3)
  - INJECTION SITE DISCOMFORT [None]
  - MENINGITIS [None]
  - PNEUMONIA [None]
